FAERS Safety Report 7299309-6 (Version None)
Quarter: 2011Q1

REPORT INFORMATION
  Report Type: 
  Country: None (occurrence: None)
  Receive Date: 20110209
  Receipt Date: 20091221
  Transmission Date: 20110831
  Serious: Yes (Hospitalization)
  Sender: FDA-Public Use
  Company Number: DSA_42184_2009

PATIENT
  Age: 88 Year
  Sex: Female

DRUGS (7)
  1. ENALAPRIL MALEATE [Suspect]
     Indication: CARDIAC FAILURE
     Dosage: (12.5 MG QD ORAL)
     Route: 048
  2. DELATACORTENE-PREDNISONE [Concomitant]
  3. GLUCOPHAGE [Suspect]
     Indication: TYPE 2 DIABETES MELLITUS
     Dosage: (1500 MG QD ORAL)
     Route: 048
  4. PARIET [Concomitant]
  5. THEOPHYLLINE [Concomitant]
  6. SOLOSA (SOLOSA-GLIMEPIRIDE) (NOT SPECIFIED) [Suspect]
     Indication: TYPE 2 DIABETES MELLITUS
     Dosage: (3 MG QD ORAL), (2 MG FREQUENCY UNSPEVIFIED ORAL)
     Route: 048
     Dates: start: 20091026, end: 20091029
  7. SOLOSA (SOLOSA-GLIMEPIRIDE) (NOT SPECIFIED) [Suspect]
     Indication: TYPE 2 DIABETES MELLITUS
     Dosage: (3 MG QD ORAL), (2 MG FREQUENCY UNSPEVIFIED ORAL)
     Route: 048
     Dates: end: 20091025

REACTIONS (5)
  - BLOOD PRESSURE INCREASED [None]
  - HYPOTONIA [None]
  - HYPOGLYCAEMIC COMA [None]
  - GASTROINTESTINAL HYPOMOTILITY [None]
  - BLOOD GLUCOSE DECREASED [None]
